FAERS Safety Report 24209286 (Version 1)
Quarter: 2024Q3

REPORT INFORMATION
  Report Type: Spontaneous
  Country: RU (occurrence: RU)
  Receive Date: 20240814
  Receipt Date: 20240814
  Transmission Date: 20241017
  Serious: Yes (Other)
  Sender: RANBAXY
  Company Number: RU-SUN PHARMACEUTICAL INDUSTRIES LTD-2024R1-462036

PATIENT

DRUGS (2)
  1. DICLOFENAC [Suspect]
     Active Substance: DICLOFENAC
     Indication: Back pain
     Dosage: 75 MILLIGRAM, DAILY
     Route: 041
  2. DICLOFENAC SODIUM\ORPHENADRINE CITRATE [Suspect]
     Active Substance: DICLOFENAC SODIUM\ORPHENADRINE CITRATE
     Indication: Back pain
     Dosage: 30 MILLIGRAM, DAILY
     Route: 041

REACTIONS (3)
  - Tremor [Unknown]
  - Somnolence [Unknown]
  - Dizziness [Unknown]
